FAERS Safety Report 10185651 (Version 1)
Quarter: 2014Q2

REPORT INFORMATION
  Report Type: Spontaneous
  Country: US (occurrence: None)
  Receive Date: 20140520
  Receipt Date: 20140520
  Transmission Date: 20141212
  Serious: Yes (Hospitalization)
  Sender: FDA-Public Use
  Company Number: None

PATIENT
  Age: 72 Year
  Sex: Female
  Weight: 58.06 kg

DRUGS (8)
  1. ELIQUIS 5MG PFIZER/BRISTOL MYERS SQUIBB [Suspect]
     Indication: ATRIAL FIBRILLATION
     Route: 048
  2. VERAPAMIL [Concomitant]
  3. ATIVAN [Concomitant]
  4. LOPID [Concomitant]
  5. ELIQUIS [Concomitant]
  6. MOEXIPRIL [Concomitant]
  7. HCTZ [Concomitant]
  8. FOSAMAX [Concomitant]

REACTIONS (2)
  - Urinary incontinence [None]
  - Generalised tonic-clonic seizure [None]
